FAERS Safety Report 6468670-4 (Version None)
Quarter: 2009Q4

REPORT INFORMATION
  Report Type: 
  Country: None (occurrence: None)
  Receive Date: 20091203
  Receipt Date: 20091125
  Transmission Date: 20100525
  Serious: Yes (Hospitalization)
  Sender: FDA-Public Use
  Company Number: FR-ROCHE-671210

PATIENT
  Sex: Male

DRUGS (7)
  1. PEGASYS [Suspect]
     Indication: HEPATITIS C
     Route: 058
     Dates: start: 20090220
  2. COPEGUS [Suspect]
     Indication: HEPATITIS C
     Route: 048
     Dates: start: 20090220, end: 20090501
  3. COPEGUS [Suspect]
     Dosage: DOSE INCREASED
     Route: 048
     Dates: start: 20090601
  4. AVLOCARDYL [Suspect]
     Route: 048
     Dates: start: 20090209, end: 20090901
  5. KALETRA [Suspect]
     Route: 065
     Dates: start: 20070101
  6. TRUVADA [Suspect]
     Route: 048
     Dates: start: 20070101
  7. FACTOR VIII [Concomitant]
     Dosage: DRUG NAME REPORTED: FACTANE 1000

REACTIONS (1)
  - PORPHYRIA NON-ACUTE [None]
